FAERS Safety Report 10367768 (Version 1)
Quarter: 2014Q3

REPORT INFORMATION
  Report Type: Spontaneous
  Country: BE (occurrence: BE)
  Receive Date: 20140807
  Receipt Date: 20140807
  Transmission Date: 20150326
  Serious: Yes (Other)
  Sender: FDA-Public Use
  Company Number: BE-BAYER-2014-115456

PATIENT
  Sex: Female

DRUGS (6)
  1. GADOVIST [Suspect]
     Active Substance: GADOBUTROL
     Indication: ANGIOGRAM
     Dosage: 15 ML, ONCE
     Dates: start: 20080423, end: 20080423
  2. MAGNEVIST [Suspect]
     Active Substance: GADOPENTETATE DIMEGLUMINE
     Indication: ANGIOGRAM
     Dosage: 30 ML, ONCE
     Dates: start: 20050124, end: 20050124
  3. GADOVIST [Suspect]
     Active Substance: GADOBUTROL
     Indication: ANGIOGRAM
     Dosage: 15 ML, ONCE
     Dates: start: 20080423, end: 20080423
  4. GADOVIST [Suspect]
     Active Substance: GADOBUTROL
     Indication: ANGIOGRAM
     Dosage: 15 ML, ONCE
     Dates: start: 20140326, end: 20140326
  5. GADOVIST [Suspect]
     Active Substance: GADOBUTROL
     Indication: ANGIOGRAM
     Dosage: 15 ML, ONCE
     Dates: start: 20140326, end: 20140326
  6. GADOVIST [Suspect]
     Active Substance: GADOBUTROL
     Indication: ANGIOGRAM
     Dosage: 15 ML, ONCE
     Dates: start: 20140326, end: 20140326

REACTIONS (2)
  - Skin induration [None]
  - Nephrogenic systemic fibrosis [None]
